FAERS Safety Report 7796677-3 (Version None)
Quarter: 2011Q3

REPORT INFORMATION
  Report Type: 
  Country: None (occurrence: None)
  Receive Date: 20110930
  Receipt Date: 20110914
  Transmission Date: 20111222
  Serious: Yes (Other)
  Sender: FDA-Public Use
  Company Number: JPI-P-017068

PATIENT
  Age: 28 Year
  Sex: Female
  Weight: 72.1219 kg

DRUGS (3)
  1. XYREM [Suspect]
     Indication: CATAPLEXY
     Dosage: 6 GM (3 GM, 2 IN 1 D), ORAL
     Route: 048
     Dates: start: 20110106, end: 20110909
  2. XYREM [Suspect]
     Dosage: 8 GM (4 GM, 2 IN 1 D), ORAL, 6.5 GM (3.25 GM, 2 IN 1 D), ORAL
     Route: 048
     Dates: start: 20110912
  3. XYREM [Suspect]
     Dosage: 8 GM (4 GM, 2 IN 1 D), ORAL, 6.5 GM (3.25 GM, 2 IN 1 D), ORAL
     Route: 048
     Dates: start: 20110910, end: 20110911

REACTIONS (6)
  - TENDON RUPTURE [None]
  - NAUSEA [None]
  - FALL [None]
  - FATIGUE [None]
  - INSOMNIA [None]
  - MUSCLE RUPTURE [None]
